FAERS Safety Report 6086572-2 (Version None)
Quarter: 2009Q1

REPORT INFORMATION
  Report Type: 
  Country: None (occurrence: None)
  Receive Date: 20090223
  Receipt Date: 20090212
  Transmission Date: 20090719
  Serious: Yes (Death, Other)
  Sender: FDA-Public Use
  Company Number: NL-AMGEN-US334225

PATIENT
  Age: 71 Year
  Sex: Male
  Weight: 65 kg

DRUGS (9)
  1. ENBREL [Suspect]
     Indication: ANKYLOSING SPONDYLITIS
     Route: 058
     Dates: start: 20050701
  2. CALCIUM CARBONATE [Concomitant]
     Route: 065
  3. FUROSEMIDE [Concomitant]
     Route: 065
  4. RENAGEL [Concomitant]
     Route: 065
  5. DOMPERIDONE [Concomitant]
     Route: 065
  6. ARANESP [Concomitant]
     Route: 065
  7. VENOFER [Concomitant]
     Route: 065
  8. LISINOPRIL [Concomitant]
     Route: 065
  9. DIAZEPAM [Concomitant]
     Route: 065

REACTIONS (4)
  - AMYLOIDOSIS [None]
  - CONDITION AGGRAVATED [None]
  - RENAL FAILURE [None]
  - TUBULOINTERSTITIAL NEPHRITIS [None]
